FAERS Safety Report 8113257-0 (Version None)
Quarter: 2012Q1

REPORT INFORMATION
  Report Type: 
  Country: None (occurrence: None)
  Receive Date: 20120203
  Receipt Date: 20120125
  Transmission Date: 20120608
  Serious: Yes (Hospitalization)
  Sender: FDA-Public Use
  Company Number: PHHY2012BE006687

PATIENT

DRUGS (9)
  1. ONBREZ [Suspect]
     Indication: CHRONIC OBSTRUCTIVE PULMONARY DISEASE
     Dosage: 150 UG, QD
     Dates: start: 20110608
  2. LIPITOR [Concomitant]
     Indication: HYPERCHOLESTEROLAEMIA
     Dosage: 10 MG, QD
  3. ONBREZ [Suspect]
     Dosage: 150 UG, QD
  4. SYMBICORT [Concomitant]
     Indication: CHRONIC OBSTRUCTIVE PULMONARY DISEASE
  5. ASPIRIN [Concomitant]
     Indication: HYPERTENSION
     Dosage: 80 MG, QD
  6. ONBREZ [Suspect]
     Dosage: 300 UG, QD
     Dates: end: 20111201
  7. SPIRIVA [Concomitant]
     Indication: CHRONIC OBSTRUCTIVE PULMONARY DISEASE
  8. COZAAR [Concomitant]
     Indication: HYPERTENSION
     Dosage: 100 MG, QD
  9. OMACOR [Concomitant]
     Indication: CARDIOVASCULAR DISORDER

REACTIONS (4)
  - PNEUMONIA [None]
  - CEREBROVASCULAR ACCIDENT [None]
  - ATRIAL FIBRILLATION [None]
  - DYSPNOEA [None]
